FAERS Safety Report 11581980 (Version 1)
Quarter: 2015Q3

REPORT INFORMATION
  Report Type: Spontaneous
  Country: US (occurrence: None)
  Receive Date: 20150930
  Receipt Date: 20150930
  Transmission Date: 20151125
  Serious: Yes (Other)
  Sender: FDA-Public Use
  Company Number: None

PATIENT
  Age: 70 Year
  Sex: Female

DRUGS (1)
  1. GLIPIZIDE XL [Suspect]
     Active Substance: GLIPIZIDE
     Indication: DIABETES MELLITUS
     Route: 048
     Dates: start: 20150827, end: 20150909

REACTIONS (3)
  - Drug effect decreased [None]
  - Blood glucose increased [None]
  - Product substitution issue [None]

NARRATIVE: CASE EVENT DATE: 20150827
